FAERS Safety Report 25863761 (Version 1)
Quarter: 2025Q3

REPORT INFORMATION
  Report Type: Spontaneous
  Country: US (occurrence: US)
  Receive Date: 20250930
  Receipt Date: 20250930
  Transmission Date: 20251020
  Serious: No
  Sender: ABBVIE
  Company Number: US-ABBVIE-6474632

PATIENT
  Sex: Male

DRUGS (3)
  1. OXYTROL FOR WOMEN [Suspect]
     Active Substance: OXYBUTYNIN
     Indication: Hypertonic bladder
     Route: 062
     Dates: start: 2002
  2. OXYTROL FOR WOMEN [Suspect]
     Active Substance: OXYBUTYNIN
     Indication: Cystitis interstitial
  3. OXYTROL FOR WOMEN [Suspect]
     Active Substance: OXYBUTYNIN
     Indication: Nephrolithiasis

REACTIONS (5)
  - Application site pain [Recovered/Resolved]
  - Product colour issue [Unknown]
  - Product odour abnormal [Unknown]
  - Product packaging issue [Unknown]
  - Off label use [Unknown]
